FAERS Safety Report 7572159-9 (Version None)
Quarter: 2011Q2

REPORT INFORMATION
  Report Type: 
  Country: None (occurrence: None)
  Receive Date: 20110624
  Receipt Date: 20110615
  Transmission Date: 20111010
  Serious: Yes (Hospitalization)
  Sender: FDA-Public Use
  Company Number: US-AMGEN-USASP2011030731

PATIENT
  Age: 36 Year
  Sex: Female

DRUGS (1)
  1. ENBREL [Suspect]
     Indication: PSORIASIS
     Dosage: 50 MG, PRN
     Route: 058
     Dates: start: 20050205, end: 20080101

REACTIONS (2)
  - ABDOMINAL HERNIA [None]
  - POST PROCEDURAL COMPLICATION [None]
